FAERS Safety Report 5462237-2 (Version None)
Quarter: 2007Q3

REPORT INFORMATION
  Report Type: 
  Country: None (occurrence: None)
  Receive Date: 20070920
  Receipt Date: 20070601
  Transmission Date: 20080115
  Serious: No
  Sender: FDA-Public Use
  Company Number: A0653615A

PATIENT
  Age: 25 Year
  Sex: Female

DRUGS (1)
  1. ABREVA [Suspect]
     Dates: start: 20070523, end: 20070525

REACTIONS (6)
  - APPLICATION SITE INFECTION [None]
  - APPLICATION SITE SCAR [None]
  - APPLICATION SITE SWELLING [None]
  - DRUG INEFFECTIVE [None]
  - HYPERSENSITIVITY [None]
  - ORAL HERPES [None]
